FAERS Safety Report 7108344-X (Version None)
Quarter: 2010Q4

REPORT INFORMATION
  Report Type: 
  Country: None (occurrence: None)
  Receive Date: 20101112
  Receipt Date: 20101028
  Transmission Date: 20110411
  Serious: Yes (Other)
  Sender: FDA-Public Use
  Company Number: 2010SP057769

PATIENT
  Sex: Female

DRUGS (2)
  1. IMPLANON [Suspect]
     Indication: CONTRACEPTION
  2. UNSPECIFIED ANTI-TUBERCULOSIS (NOS) (OTHER DRUGS FOR TREATMENT OF TUBE [Suspect]
     Indication: TUBERCULOSIS

REACTIONS (3)
  - DRUG INTERACTION [None]
  - PREGNANCY WITH IMPLANT CONTRACEPTIVE [None]
  - TUBERCULOSIS [None]
